FAERS Safety Report 4501175-6 (Version None)
Quarter: 2004Q4

REPORT INFORMATION
  Report Type: 
  Country: None (occurrence: None)
  Receive Date: 20041115
  Receipt Date: 20041111
  Transmission Date: 20050328
  Serious: Yes (Hospitalization, Other)
  Sender: FDA-Public Use
  Company Number: PHBS2004ES15145

PATIENT
  Age: 30 Year
  Sex: Female

DRUGS (1)
  1. SYNTOCINON [Suspect]
     Indication: LABOUR INDUCTION
     Dosage: 10 IU
     Route: 042
     Dates: start: 20041023

REACTIONS (2)
  - ASPHYXIA [None]
  - SUFFOCATION FEELING [None]
